FAERS Safety Report 4363258-3 (Version None)
Quarter: 2004Q2

REPORT INFORMATION
  Report Type: 
  Country: None (occurrence: None)
  Receive Date: 20040517
  Receipt Date: 20040128
  Transmission Date: 20050107
  Serious: No
  Sender: FDA-Public Use
  Company Number: S04-USA-00393-01

PATIENT
  Age: 83 Year
  Sex: Male

DRUGS (9)
  1. NAMENDA [Suspect]
     Indication: DEMENTIA ALZHEIMER'S TYPE
     Dosage: 5 MG QD PO
     Route: 048
     Dates: start: 20040121
  2. METOPROLOL TARTRATE [Concomitant]
  3. ARICEPT [Concomitant]
  4. LEVOXYL [Concomitant]
  5. LORATADINE [Concomitant]
  6. FLUOXETINE [Concomitant]
  7. MECLIZINE [Concomitant]
  8. ASPIRIN [Concomitant]
  9. TYLENOL [Concomitant]

REACTIONS (1)
  - HALLUCINATION [None]
